FAERS Safety Report 6387855-9 (Version None)
Quarter: 2009Q4

REPORT INFORMATION
  Report Type: 
  Country: None (occurrence: None)
  Receive Date: 20091005
  Receipt Date: 20090924
  Transmission Date: 20100525
  Serious: Yes (Other)
  Sender: FDA-Public Use
  Company Number: TR-JNJFOC-20090908148

PATIENT
  Sex: Female
  Weight: 3.28 kg

DRUGS (4)
  1. RISPERIDONE [Suspect]
     Indication: DRUG EXPOSURE DURING PREGNANCY
  2. PAROXETINE HCL [Suspect]
     Indication: DRUG EXPOSURE DURING PREGNANCY
     Route: 065
  3. ALPRAZOLAM [Suspect]
     Indication: DRUG EXPOSURE DURING PREGNANCY
     Route: 065
  4. ALL OTHER THERAPEUTIC PRODUCTS [Suspect]
     Indication: DRUG EXPOSURE DURING PREGNANCY
     Route: 065

REACTIONS (5)
  - CAESAREAN SECTION [None]
  - IRRITABILITY [None]
  - MATERNAL DRUGS AFFECTING FOETUS [None]
  - MYOCLONUS [None]
  - TREMOR [None]
